FAERS Safety Report 5168785-7 (Version None)
Quarter: 2006Q4

REPORT INFORMATION
  Report Type: 
  Country: None (occurrence: None)
  Receive Date: 20061211
  Receipt Date: 20060929
  Transmission Date: 20070319
  Serious: Yes (Hospitalization)
  Sender: FDA-Public Use
  Company Number: US-AMGEN-US195323

PATIENT
  Sex: Male
  Weight: 105 kg

DRUGS (11)
  1. NEULASTA [Suspect]
     Indication: CHEMOTHERAPY
     Route: 058
     Dates: start: 20060925
  2. CYCLOPHOSPHAMIDE [Concomitant]
     Route: 065
     Dates: start: 20060918
  3. FLUDARABINE [Concomitant]
     Route: 065
     Dates: start: 20060918, end: 20060922
  4. LIPITOR [Concomitant]
     Route: 065
  5. FLOMAX [Concomitant]
     Route: 065
  6. COMPAZINE [Concomitant]
     Route: 065
  7. LORAZEPAM [Concomitant]
     Route: 065
  8. PREDNISONE TAB [Concomitant]
     Route: 065
  9. TOPROL-XL [Concomitant]
     Route: 065
  10. ASPIRIN [Concomitant]
     Route: 065
  11. BENICAR [Concomitant]
     Route: 065

REACTIONS (4)
  - ANAEMIA [None]
  - BLOOD COUNT ABNORMAL [None]
  - PNEUMONIA [None]
  - PYREXIA [None]
